FAERS Safety Report 24927459 (Version 1)
Quarter: 2025Q1

REPORT INFORMATION
  Report Type: Report from Study
  Country: IN (occurrence: IN)
  Receive Date: 20250205
  Receipt Date: 20250205
  Transmission Date: 20250409
  Serious: Yes (Other)
  Sender: ROCHE
  Company Number: IN-ROCHE-10000169342

PATIENT
  Age: 47 Year
  Sex: Female

DRUGS (4)
  1. KADCYLA [Suspect]
     Active Substance: ADO-TRASTUZUMAB EMTANSINE
     Indication: Breast cancer
     Dosage: THERAPY WAS ONGOING
     Route: 040
  2. KADCYLA [Suspect]
     Active Substance: ADO-TRASTUZUMAB EMTANSINE
     Dosage: THERAPY WAS ONGOING
     Route: 040
  3. KADCYLA [Suspect]
     Active Substance: ADO-TRASTUZUMAB EMTANSINE
     Dosage: THERAPY WAS ONGOING.
     Route: 040
     Dates: start: 20231102
  4. KADCYLA [Suspect]
     Active Substance: ADO-TRASTUZUMAB EMTANSINE
     Dosage: THERAPY WAS ONGOING.
     Route: 040

REACTIONS (4)
  - Drug ineffective [Unknown]
  - Disease progression [Unknown]
  - Pyrexia [Unknown]
  - Vomiting [Unknown]
